FAERS Safety Report 4862909-4 (Version None)
Quarter: 2005Q4

REPORT INFORMATION
  Report Type: 
  Country: None (occurrence: None)
  Receive Date: 20051129
  Receipt Date: 20050908
  Transmission Date: 20060501
  Serious: No
  Sender: FDA-Public Use
  Company Number: WAES 0509USA00980

PATIENT
  Age: 65 Year
  Sex: Female

DRUGS (3)
  1. ZETIA [Suspect]
     Indication: BLOOD CHOLESTEROL INCREASED
     Dosage: 10MG DAILY PO
     Route: 048
     Dates: start: 20031001, end: 20050905
  2. FLAXSEED [Concomitant]
  3. VITAMINS (UNSPECIFIED) [Concomitant]

REACTIONS (9)
  - ABDOMINAL PAIN [None]
  - ARTHROPATHY [None]
  - BACK PAIN [None]
  - DIFFICULTY IN WALKING [None]
  - FATIGUE [None]
  - MYALGIA [None]
  - PAIN IN EXTREMITY [None]
  - TREMOR [None]
  - URINE ANALYSIS ABNORMAL [None]
